FAERS Safety Report 8440625-X (Version None)
Quarter: 2012Q2

REPORT INFORMATION
  Report Type: 
  Country: None (occurrence: None)
  Receive Date: 20120615
  Receipt Date: 20120608
  Transmission Date: 20120825
  Serious: Yes (Hospitalization, Other)
  Sender: FDA-Public Use
  Company Number: US-MERCK-1103USA00937

PATIENT
  Age: 54 Year
  Sex: Female

DRUGS (5)
  1. ALENDRONATE SODIUM [Suspect]
     Indication: OSTEOPOROSIS
     Route: 048
     Dates: start: 20080101, end: 20090501
  2. VITAMINS (UNSPECIFIED) [Concomitant]
     Route: 065
     Dates: start: 19960101
  3. CALCIUM (UNSPECIFIED) [Concomitant]
     Route: 065
     Dates: start: 19960101
  4. FOSAMAX [Suspect]
     Route: 048
  5. FOSAMAX [Suspect]
     Indication: OSTEOPOROSIS
     Route: 048
     Dates: start: 19950101, end: 20080401

REACTIONS (21)
  - ANXIETY [None]
  - VISUAL IMPAIRMENT [None]
  - SCOLIOSIS [None]
  - INTERVERTEBRAL DISC DEGENERATION [None]
  - FRACTURE [None]
  - UPPER RESPIRATORY TRACT INFECTION [None]
  - ABSCESS [None]
  - CHOLELITHIASIS [None]
  - INSOMNIA [None]
  - HYPERTENSION [None]
  - DIVERTICULITIS [None]
  - OSTEOARTHRITIS [None]
  - LOW TURNOVER OSTEOPATHY [None]
  - HYPOTHYROIDISM [None]
  - DIVERTICULUM [None]
  - CEREBRAL INFARCTION [None]
  - SPINAL DISORDER [None]
  - FALL [None]
  - HYPERCHOLESTEROLAEMIA [None]
  - FEMUR FRACTURE [None]
  - DEPRESSION [None]
